FAERS Safety Report 8451435-1 (Version None)
Quarter: 2012Q2

REPORT INFORMATION
  Report Type: 
  Country: None (occurrence: None)
  Receive Date: 20120620
  Receipt Date: 20120229
  Transmission Date: 20120825
  Serious: No
  Sender: FDA-Public Use
  Company Number: US-VERTEX PHARMACEUTICALS INC.-AE-2012-002959

PATIENT
  Sex: Female
  Weight: 107.14 kg

DRUGS (3)
  1. INCIVEK [Suspect]
     Indication: HEPATITIS C
     Route: 048
     Dates: start: 20120227
  2. RIBAVIRIN [Concomitant]
     Indication: HEPATITIS C
     Route: 048
     Dates: start: 20120227
  3. PEG-INTRON [Concomitant]
     Indication: HEPATITIS C
     Dates: start: 20120227

REACTIONS (1)
  - SINUS HEADACHE [None]
